FAERS Safety Report 14722930 (Version 1)
Quarter: 2018Q2

REPORT INFORMATION
  Report Type: Spontaneous
  Country: TR (occurrence: TR)
  Receive Date: 20180405
  Receipt Date: 20180405
  Transmission Date: 20180711
  Serious: Yes (Life-Threatening, Other)
  Sender: FDA-Public Use
  Company Number: PHHY2018TR058726

PATIENT
  Age: 37 Year
  Sex: Female

DRUGS (1)
  1. CATAFLAM [Suspect]
     Active Substance: DICLOFENAC POTASSIUM
     Indication: PAIN
     Dosage: 50 MG, UNK
     Route: 065

REACTIONS (10)
  - Apnoea [Unknown]
  - Pain [Unknown]
  - Burning sensation [Unknown]
  - Throat tightness [Unknown]
  - Soft tissue swelling [Unknown]
  - Lip pain [Unknown]
  - Anaphylactic shock [Unknown]
  - Lymphadenopathy [Unknown]
  - Oral discomfort [Unknown]
  - Feeling abnormal [Unknown]
